FAERS Safety Report 4943410-6 (Version None)
Quarter: 2006Q1

REPORT INFORMATION
  Report Type: 
  Country: None (occurrence: None)
  Receive Date: 20060309
  Receipt Date: 20060227
  Transmission Date: 20060701
  Serious: Yes (Other)
  Sender: FDA-Public Use
  Company Number: 2006016447

PATIENT
  Age: 44 Year
  Sex: Male
  Weight: 90.7194 kg

DRUGS (2)
  1. BENGAY ULTRA STRENGTH PATCH (MENTHOL) [Suspect]
     Indication: BACK PAIN
     Dosage: 1 PATCH FOR 8 HOURS ONCE DAILY, TOPICAL
     Route: 061
     Dates: start: 20060125, end: 20060127
  2. MENTHOL (MENTHOL) [Suspect]
     Indication: ULTRASOUND SCAN
     Dosage: ONCE, TOPICAL
     Route: 061
     Dates: start: 20060127, end: 20060127

REACTIONS (5)
  - DYSPNOEA [None]
  - HYPOAESTHESIA ORAL [None]
  - RASH ERYTHEMATOUS [None]
  - RASH PRURITIC [None]
  - SWELLING FACE [None]
